FAERS Safety Report 9801014 (Version 1)
Quarter: 2014Q1

REPORT INFORMATION
  Report Type: Spontaneous
  Country: US (occurrence: US)
  Receive Date: 20140107
  Receipt Date: 20140107
  Transmission Date: 20141002
  Serious: Yes (Death, Disabling)
  Sender: FDA-Public Use
  Company Number: US-BAYER-2013-158759

PATIENT
  Sex: Female

DRUGS (1)
  1. MIRENA [Suspect]
     Dosage: 20 MCG/24HR, CONT
     Route: 015
     Dates: start: 20110107

REACTIONS (26)
  - Beta haemolytic streptococcal infection [Fatal]
  - Pelvic inflammatory disease [Fatal]
  - Toxic shock syndrome [Fatal]
  - Pelvic abscess [None]
  - Pyrexia [Fatal]
  - Nausea [Fatal]
  - Vomiting [Fatal]
  - Diarrhoea [Fatal]
  - Abdominal pain [Fatal]
  - Abdominal tenderness [Fatal]
  - Headache [None]
  - Rash [None]
  - Visual impairment [None]
  - Fatigue [Fatal]
  - Discomfort [Fatal]
  - Nervous system disorder [None]
  - Medical device complication [None]
  - Injury [Fatal]
  - Pain [Fatal]
  - Depression [None]
  - Emotional distress [None]
  - Fear of death [None]
  - Anhedonia [None]
  - Anxiety [None]
  - Psychological trauma [None]
  - Pain [None]
